FAERS Safety Report 13776845 (Version 2)
Quarter: 2017Q4

REPORT INFORMATION
  Report Type: Spontaneous
  Country: US (occurrence: US)
  Receive Date: 20170721
  Receipt Date: 20171012
  Transmission Date: 20180320
  Serious: Yes (Death, Other)
  Sender: FDA-Public Use
  Company Number: US-GLAXOSMITHKLINE-US2017GSK113271

PATIENT
  Sex: Male

DRUGS (1)
  1. DESENEX (MICONAZOLE NITRATE) [Suspect]
     Active Substance: MICONAZOLE NITRATE
     Indication: PRODUCT USED FOR UNKNOWN INDICATION
     Dosage: UNK
     Route: 065

REACTIONS (10)
  - Weight decreased [Unknown]
  - Decreased appetite [Unknown]
  - Somnolence [Unknown]
  - Fatigue [Unknown]
  - Mesothelioma malignant [Unknown]
  - Dysphagia [Unknown]
  - Death [Fatal]
  - Pain [Unknown]
  - Lethargy [Unknown]
  - Dyspnoea [Unknown]
